FAERS Safety Report 8170275-4 (Version None)
Quarter: 2012Q1

REPORT INFORMATION
  Report Type: 
  Country: None (occurrence: None)
  Receive Date: 20120104
  Receipt Date: 20111024
  Transmission Date: 20120608
  Serious: No
  Sender: FDA-Public Use
  Company Number: 2011HGS-002681

PATIENT
  Age: 56 Year
  Sex: Female
  Weight: 60.3284 kg

DRUGS (7)
  1. BENLYSTA [Suspect]
     Indication: SYSTEMIC LUPUS ERYTHEMATOSUS
     Dosage: 10 MG/KG, EVERY 2 WEEKS X 3 THEN  EVERY 4 WEEKS, INTRAVENOUS DRIP
     Route: 041
     Dates: start: 20110523
  2. METOPROLOL SUCCINATE [Concomitant]
  3. LORAZEPAM [Concomitant]
  4. AMBIEN [Concomitant]
  5. ARMOUR THYROID (THYROID) (THYROID) [Concomitant]
  6. LYRICA [Concomitant]
  7. PREDNISONE [Concomitant]

REACTIONS (6)
  - ABDOMINAL PAIN UPPER [None]
  - MIGRAINE [None]
  - NEUROPATHY PERIPHERAL [None]
  - HOT FLUSH [None]
  - NAUSEA [None]
  - UNEVALUABLE EVENT [None]
